FAERS Safety Report 4552723-1 (Version None)
Quarter: 2005Q1

REPORT INFORMATION
  Report Type: 
  Country: None (occurrence: None)
  Receive Date: 20050114
  Receipt Date: 20050107
  Transmission Date: 20050727
  Serious: Yes (Hospitalization, Other)
  Sender: FDA-Public Use
  Company Number: US-AMGEN-US106801

PATIENT
  Sex: Male

DRUGS (10)
  1. EPOGEN [Suspect]
     Indication: RENAL FAILURE CHRONIC
     Route: 058
     Dates: start: 20030311
  2. PRAVACHOL [Concomitant]
  3. GLUCOTROL [Concomitant]
  4. IMDUR [Concomitant]
  5. ALLOPURINOL [Concomitant]
  6. HYTRIN [Concomitant]
  7. LONITEN [Concomitant]
  8. LIPITOR [Concomitant]
  9. NORVASC [Concomitant]
  10. IRON [Concomitant]
     Route: 042
     Dates: start: 20031201, end: 20040701

REACTIONS (6)
  - CARDIAC FAILURE CONGESTIVE [None]
  - DRUG INEFFECTIVE [None]
  - HAEMOGLOBIN DECREASED [None]
  - IRON DEFICIENCY [None]
  - PNEUMONIA [None]
  - WHITE BLOOD CELL COUNT INCREASED [None]
